FAERS Safety Report 10140145 (Version 1)
Quarter: 2014Q2

REPORT INFORMATION
  Report Type: Spontaneous
  Country: US (occurrence: US)
  Receive Date: 20140429
  Receipt Date: 20140429
  Transmission Date: 20141212
  Serious: Yes (Other)
  Sender: FDA-Public Use
  Company Number: US-PFIZER INC-2014115568

PATIENT
  Age: 63 Year
  Sex: Female

DRUGS (6)
  1. IBUPROFEN [Suspect]
     Dosage: UNK
  2. CELEBREX [Suspect]
     Dosage: UNK
  3. NAPROXEN SODIUM [Suspect]
     Dosage: UNK
  4. METFORMIN HCL [Suspect]
     Dosage: UNK
     Dates: start: 1990
  5. CORTISONE [Suspect]
     Indication: CARPAL TUNNEL SYNDROME
     Dosage: UNK
     Dates: start: 1999, end: 2012
  6. ALEVE [Suspect]
     Dosage: UNK

REACTIONS (9)
  - Diabetes mellitus [Not Recovered/Not Resolved]
  - Colitis ulcerative [Not Recovered/Not Resolved]
  - Polyp [Recovered/Resolved]
  - Irritable bowel syndrome [Not Recovered/Not Resolved]
  - Spinal column stenosis [Not Recovered/Not Resolved]
  - Bone disorder [Not Recovered/Not Resolved]
  - Colitis [Recovered/Resolved]
  - Headache [Not Recovered/Not Resolved]
  - Gastrointestinal inflammation [Not Recovered/Not Resolved]
